FAERS Safety Report 6974965-8 (Version None)
Quarter: 2010Q3

REPORT INFORMATION
  Report Type: 
  Country: None (occurrence: None)
  Receive Date: 20100909
  Receipt Date: 20090113
  Transmission Date: 20110219
  Serious: No
  Sender: FDA-Public Use
  Company Number: US-WYE-H07708909

PATIENT
  Age: 31 Year
  Sex: Female

DRUGS (3)
  1. PRISTIQ [Suspect]
     Indication: ANXIETY
     Route: 048
     Dates: start: 20080801
  2. MULTI-VITAMINS [Concomitant]
  3. ZYRTEC [Concomitant]

REACTIONS (3)
  - DYSMENORRHOEA [None]
  - HYPOMENORRHOEA [None]
  - MENSTRUATION DELAYED [None]
